FAERS Safety Report 5036325-9 (Version None)
Quarter: 2006Q2

REPORT INFORMATION
  Report Type: 
  Country: None (occurrence: None)
  Receive Date: 20060601
  Receipt Date: 20060216
  Transmission Date: 20061013
  Serious: Yes (Life-Threatening, Hospitalization)
  Sender: FDA-Public Use
  Company Number: US200602003496

PATIENT
  Age: 63 Year
  Sex: Male

DRUGS (2)
  1. CYMBALTA [Suspect]
     Indication: DEPRESSION
     Dosage: 120 MG, DAILY (1/D),; 30 MG
     Dates: start: 20050101, end: 20060205
  2. CYMBALTA [Suspect]
     Indication: DEPRESSION
     Dosage: 120 MG, DAILY (1/D),; 30 MG
     Dates: start: 20060215

REACTIONS (3)
  - CONFUSIONAL STATE [None]
  - DEPRESSION [None]
  - MYOCARDIAL INFARCTION [None]
